FAERS Safety Report 6331165-2 (Version None)
Quarter: 2009Q3

REPORT INFORMATION
  Report Type: 
  Country: None (occurrence: None)
  Receive Date: 20090827
  Receipt Date: 20090819
  Transmission Date: 20100115
  Serious: Yes (Other)
  Sender: FDA-Public Use
  Company Number: US-JNJFOC-20080700216

PATIENT
  Sex: Female
  Weight: 40.6 kg

DRUGS (6)
  1. REMICADE [Suspect]
     Indication: TAKAYASU'S ARTERITIS
     Route: 042
  2. METHOTREXATE SODIUM [Concomitant]
     Dosage: CONTINUOUSLY EXCEPT FOR A 6-WEEK INTERRUPTION PERIOPERATIVELY
     Route: 042
  3. METHOTREXATE SODIUM [Concomitant]
     Route: 048
  4. PREDNISONE TAB [Concomitant]
  5. PREDNISONE TAB [Concomitant]
  6. PREDNISONE TAB [Concomitant]

REACTIONS (1)
  - THYROID CANCER [None]
